FAERS Safety Report 15473467 (Version 1)
Quarter: 2018Q4

REPORT INFORMATION
  Report Type: Spontaneous
  Country: CN (occurrence: CN)
  Receive Date: 20181008
  Receipt Date: 20181008
  Transmission Date: 20190205
  Serious: Yes (Other)
  Sender: FDA-Public Use
  Company Number: CN-SA-2018SA275420

PATIENT
  Age: 24 Year
  Sex: Male

DRUGS (4)
  1. ETHAMBUTOL HYDROCHLORIDE. [Suspect]
     Active Substance: ETHAMBUTOL HYDROCHLORIDE
     Indication: PULMONARY TUBERCULOSIS
     Dosage: 0.75 G, QD
     Route: 048
     Dates: start: 20180711, end: 20180727
  2. RIFAPENTINE [Suspect]
     Active Substance: RIFAPENTINE
     Dosage: 0.45 G TWICE EVERY 1WK
     Route: 048
     Dates: start: 20180711, end: 20180727
  3. LEVOFLOXACIN. [Suspect]
     Active Substance: LEVOFLOXACIN
     Dosage: 0.5 G, QD
     Route: 048
     Dates: start: 20180711, end: 20180727
  4. ISONIAZID. [Suspect]
     Active Substance: ISONIAZID
     Indication: PULMONARY TUBERCULOSIS
     Dosage: 0.3 G
     Route: 048
     Dates: start: 20180711, end: 20180727

REACTIONS (3)
  - Blister [Recovered/Resolved]
  - Off label use [Recovered/Resolved]
  - Rash [Recovered/Resolved]

NARRATIVE: CASE EVENT DATE: 20180711
